FAERS Safety Report 6179531-2 (Version None)
Quarter: 2009Q2

REPORT INFORMATION
  Report Type: 
  Country: None (occurrence: None)
  Receive Date: 20090501
  Receipt Date: 20090501
  Transmission Date: 20091009
  Serious: Yes (Other)
  Sender: FDA-Public Use
  Company Number: None

PATIENT
  Age: 51 Year
  Sex: Male
  Weight: 102.0593 kg

DRUGS (1)
  1. SIMAVASTATIN [Suspect]
     Indication: BLOOD CHOLESTEROL INCREASED
     Dosage: HALF PILL AT BEDTIME ONCE A DAY PO
     Route: 048
     Dates: start: 20090413, end: 20090415

REACTIONS (2)
  - FEELING ABNORMAL [None]
  - GAIT DISTURBANCE [None]
